FAERS Safety Report 10006901 (Version 1)
Quarter: 2014Q1

REPORT INFORMATION
  Report Type: Spontaneous
  Country: US (occurrence: None)
  Receive Date: 20140311
  Receipt Date: 20140311
  Transmission Date: 20141002
  Serious: Yes (Other)
  Sender: FDA-Public Use
  Company Number: 20140103

PATIENT
  Age: 47 Year
  Sex: Male

DRUGS (13)
  1. ONDANSETRON [Suspect]
     Indication: PRODUCT USED FOR UNKNOWN INDICATION
  2. DULOXETINE [Suspect]
     Indication: DEPRESSION
  3. FENTANYL [Suspect]
     Indication: ANAESTHESIA
     Dosage: UNKNOWN DOSE +2
  4. TRAZODONE [Suspect]
     Indication: DEPRESSION
     Dosage: EVERY EVINING
  5. GLYCOPYRROLATE [Concomitant]
  6. KETAMINE [Concomitant]
  7. NEOSTIGMINE METHYLSULFATE [Concomitant]
  8. GABAPENTIN [Concomitant]
  9. VECURONIUM [Concomitant]
  10. SUCCINYLCHOLINE [Concomitant]
  11. PROPOFOL [Concomitant]
  12. MIDAZOLAM [Concomitant]
  13. DESFLURANE [Concomitant]

REACTIONS (6)
  - Serotonin syndrome [None]
  - Acidosis [None]
  - Drug interaction [None]
  - Urethral stenosis [None]
  - Procedural complication [None]
  - Tachycardia [None]
